FAERS Safety Report 9149930 (Version 1)
Quarter: 2013Q1

REPORT INFORMATION
  Report Type: Spontaneous
  Country: GR (occurrence: None)
  Receive Date: 20130131
  Receipt Date: 20130131
  Transmission Date: 20140127
  Serious: Yes (Hospitalization, Other)
  Sender: FDA-Public Use
  Company Number: THQ2013A00633

PATIENT
  Age: 82 Year
  Sex: Male

DRUGS (4)
  1. ACTOS (PIOGLITAZONE HYDROCHLORIDE) [Suspect]
     Indication: TYPE 2 DIABETES MELLITUS
     Route: 048
     Dates: start: 2003, end: 201210
  2. SOLOSA (GLIMEPIRIDE) [Concomitant]
  3. CLOPIDOGREL [Concomitant]
  4. EXELON (RIVASTIGMINE TARTRATE) [Concomitant]

REACTIONS (2)
  - Bladder cancer [None]
  - General physical health deterioration [None]
